FAERS Safety Report 8507351-X (Version None)
Quarter: 2012Q3

REPORT INFORMATION
  Report Type: 
  Country: None (occurrence: None)
  Receive Date: 20120712
  Receipt Date: 20120703
  Transmission Date: 20120928
  Serious: Yes (Other)
  Sender: FDA-Public Use
  Company Number: CA-FRI-1000037013

PATIENT
  Age: 67 Year
  Sex: Female

DRUGS (3)
  1. ESCITALOPRAM [Suspect]
  2. FUROSEMIDE [Suspect]
  3. QUETIAPINE [Suspect]

REACTIONS (4)
  - ELECTROCARDIOGRAM QT PROLONGED [None]
  - HYPOMAGNESAEMIA [None]
  - HYPOKALAEMIA [None]
  - TORSADE DE POINTES [None]
